FAERS Safety Report 6234508-3 (Version None)
Quarter: 2009Q2

REPORT INFORMATION
  Report Type: 
  Country: None (occurrence: None)
  Receive Date: 20090618
  Receipt Date: 20081203
  Transmission Date: 20091009
  Serious: Yes (Hospitalization)
  Sender: FDA-Public Use
  Company Number: US-BRISTOL-MYERS SQUIBB COMPANY-14433338

PATIENT
  Age: 61 Year
  Sex: Male

DRUGS (2)
  1. CARBIDOPA + LEVODOPA [Suspect]
     Indication: PARKINSON'S DISEASE
     Dosage: 1 DOSAGE FORM = 1 TAB
     Route: 048
     Dates: start: 20071016, end: 20080506
  2. LISINOPRIL [Suspect]
     Indication: HYPERTENSION
     Dosage: LISINOPRIL TABS FORM = TABS 10MG/AM
     Route: 048
     Dates: start: 20071016

REACTIONS (2)
  - ORTHOSTATIC HYPOTENSION [None]
  - SYNCOPE [None]
